FAERS Safety Report 23808456 (Version 4)
Quarter: 2024Q3

REPORT INFORMATION
  Report Type: Spontaneous
  Country: US (occurrence: US)
  Receive Date: 20240502
  Receipt Date: 20240912
  Transmission Date: 20241017
  Serious: No
  Sender: PFIZER
  Company Number: US-PFIZER INC-202400095830

PATIENT
  Age: 5 Year
  Sex: Male

DRUGS (1)
  1. GENOTROPIN [Suspect]
     Active Substance: SOMATROPIN
     Indication: Silver-Russell syndrome
     Dosage: 0.7MG ONCE A DAY BY INJECTION/ 0.7MG/DAY
     Route: 058
     Dates: start: 20240419

REACTIONS (4)
  - Incorrect dose administered by device [Unknown]
  - Needle issue [Unknown]
  - Off label use [Unknown]
  - Product administered at inappropriate site [Unknown]
